FAERS Safety Report 9716320 (Version 1)
Quarter: 2013Q4

REPORT INFORMATION
  Report Type: Report from Study
  Country: DE (occurrence: DE)
  Receive Date: 20131127
  Receipt Date: 20131127
  Transmission Date: 20140711
  Serious: No
  Sender: FDA-Public Use
  Company Number: DE-SA-2013SA120655

PATIENT
  Sex: 0
  Weight: 72 kg

DRUGS (5)
  1. DRONEDARONE [Suspect]
     Indication: ATRIAL FIBRILLATION
     Dates: start: 20121116
  2. SIMVASTATIN [Concomitant]
     Indication: HYPERLIPIDAEMIA
  3. ATENOLOL [Concomitant]
     Indication: HYPERTENSION
  4. NIFEDIPINE [Concomitant]
     Indication: HYPERTENSION
  5. PHENPROCOUMON [Concomitant]
     Indication: ATRIAL FIBRILLATION

REACTIONS (1)
  - Renal failure [Recovering/Resolving]
